FAERS Safety Report 23874061 (Version 5)
Quarter: 2025Q1

REPORT INFORMATION
  Report Type: Report from Study
  Country: JP (occurrence: JP)
  Receive Date: 20240520
  Receipt Date: 20250318
  Transmission Date: 20250408
  Serious: Yes (Death, Life-Threatening, Hospitalization)
  Sender: SHIONOGI
  Company Number: JP-shionogi-202403690_FTR_P_1

PATIENT
  Age: 5 Decade
  Sex: Male
  Weight: 59.3 kg

DRUGS (14)
  1. CEFIDEROCOL [Suspect]
     Active Substance: CEFIDEROCOL
     Indication: Pneumonia pseudomonal
     Route: 041
     Dates: start: 20240130, end: 20240221
  2. CEFIDEROCOL [Suspect]
     Active Substance: CEFIDEROCOL
     Route: 041
     Dates: start: 20240222, end: 20240414
  3. YD SOLITA T NO.3 [Concomitant]
     Indication: Product used for unknown indication
     Route: 065
     Dates: end: 20240221
  4. YD SOLITA T NO.1 [Concomitant]
     Indication: Product used for unknown indication
     Route: 065
     Dates: start: 20240222, end: 20240408
  5. MITIGLINIDE CALCIUM ANHYDROUS [Concomitant]
     Active Substance: MITIGLINIDE CALCIUM ANHYDROUS
     Indication: Product used for unknown indication
     Route: 051
     Dates: end: 20240406
  6. VONOPRAZAN FUMARATE [Concomitant]
     Active Substance: VONOPRAZAN FUMARATE
     Indication: Prophylaxis
     Route: 051
     Dates: start: 20240213, end: 20240410
  7. MICAFUNGIN SODIUM [Concomitant]
     Active Substance: MICAFUNGIN SODIUM
     Indication: Systemic candida
     Route: 065
     Dates: start: 20240215, end: 20240414
  8. VANCOMYCIN HYDROCHLORIDE [Concomitant]
     Active Substance: VANCOMYCIN HYDROCHLORIDE
     Indication: Staphylococcal bacteraemia
     Route: 065
     Dates: start: 20240220, end: 20240222
  9. VANCOMYCIN HYDROCHLORIDE [Concomitant]
     Active Substance: VANCOMYCIN HYDROCHLORIDE
     Route: 065
     Dates: start: 20240223, end: 20240227
  10. VANCOMYCIN HYDROCHLORIDE [Concomitant]
     Active Substance: VANCOMYCIN HYDROCHLORIDE
     Route: 065
     Dates: start: 20240228, end: 20240312
  11. AMLODIPINE [Concomitant]
     Active Substance: AMLODIPINE BESYLATE
     Indication: Blood pressure increased
     Route: 051
     Dates: start: 20240311, end: 20240411
  12. DEXTROSE [Concomitant]
     Active Substance: DEXTROSE MONOHYDRATE
     Indication: Product used for unknown indication
     Route: 065
     Dates: start: 20240407, end: 20240410
  13. CALCIUM CHLORIDE ANHYDROUS\POTASSIUM CHLORIDE\SODIUM CHLORIDE\SODIUM L [Concomitant]
     Active Substance: CALCIUM CHLORIDE ANHYDROUS\POTASSIUM CHLORIDE\SODIUM CHLORIDE\SODIUM LACTATE
     Indication: Product used for unknown indication
     Route: 065
     Dates: start: 20240408, end: 20240414
  14. NOREPINEPHRINE HYDROCHLORIDE, (+/-)- [Concomitant]
     Active Substance: NOREPINEPHRINE HYDROCHLORIDE, (+/-)-
     Indication: Blood pressure decreased
     Route: 065
     Dates: start: 20240412, end: 20240414

REACTIONS (5)
  - Blood pressure decreased [Fatal]
  - Blood pressure decreased [Recovered/Resolved]
  - Systemic candida [Unknown]
  - Staphylococcal bacteraemia [Recovered/Resolved]
  - Hypertension [Recovered/Resolved]

NARRATIVE: CASE EVENT DATE: 20240214
